FAERS Safety Report 8555422-4 (Version None)
Quarter: 2012Q3

REPORT INFORMATION
  Report Type: 
  Country: None (occurrence: None)
  Receive Date: 20120731
  Receipt Date: 20110825
  Transmission Date: 20120928
  Serious: Yes (Other)
  Sender: FDA-Public Use
  Company Number: US-ASTRAZENECA-2011SE12618

PATIENT
  Age: 43 Year
  Sex: Male

DRUGS (5)
  1. SEROQUEL [Suspect]
     Indication: ANGER
     Dosage: 100 MG HS PRN
     Route: 048
     Dates: start: 20030821
  2. EFFEXOR [Concomitant]
     Dates: start: 20030821
  3. SEROQUEL [Suspect]
     Indication: INSOMNIA
     Dosage: 100 MG HS PRN
     Route: 048
     Dates: start: 20030821
  4. SEROQUEL [Suspect]
     Indication: AGITATION
     Dosage: 100 MG HS PRN
     Route: 048
     Dates: start: 20030821
  5. WELLBUTRIN SR [Concomitant]
     Dates: start: 20030821

REACTIONS (3)
  - TYPE 2 DIABETES MELLITUS [None]
  - PANCREATITIS [None]
  - DIABETIC COMA [None]
